FAERS Safety Report 8882027 (Version 1)
Quarter: 2012Q4

REPORT INFORMATION
  Report Type: 
  Country: MX (occurrence: MX)
  Receive Date: 20121102
  Receipt Date: 20121102
  Transmission Date: 20130627
  Serious: Yes (Life-Threatening, Hospitalization)
  Sender: FDA-Public Use
  Company Number: MX-B.I. PHARMACEUTICALS,INC./RIDGEFIELD-2012-MX-00295MX

PATIENT
  Age: 36 Year
  Sex: Female
  Weight: 59.5 kg

DRUGS (2)
  1. TELMISARTAN [Suspect]
     Dosage: 80 mg
     Route: 048
     Dates: start: 20120928, end: 20120928
  2. MICARDIS [Suspect]
     Dosage: 80 mg
     Route: 048
     Dates: start: 20121012, end: 20121012

REACTIONS (2)
  - Accidental poisoning [Recovered/Resolved]
  - Coma [Recovered/Resolved]
